FAERS Safety Report 9590158 (Version 2)
Quarter: 2013Q4

REPORT INFORMATION
  Report Type: Spontaneous
  Country: US (occurrence: US)
  Receive Date: 20131003
  Receipt Date: 20131003
  Transmission Date: 20140711
  Serious: No
  Sender: FDA-Public Use
  Company Number: US-AMGEN-USASP2012073098

PATIENT
  Age: 63 Year
  Sex: Female
  Weight: 69.39 kg

DRUGS (1)
  1. ENBREL [Suspect]
     Indication: RHEUMATOID ARTHRITIS
     Dosage: 50 MG, QWK
     Dates: start: 20121102

REACTIONS (2)
  - Injection site erythema [Recovered/Resolved]
  - Injection site reaction [Recovered/Resolved]
